FAERS Safety Report 21974324 (Version 3)
Quarter: 2023Q2

REPORT INFORMATION
  Report Type: Spontaneous
  Country: IT (occurrence: IT)
  Receive Date: 20230209
  Receipt Date: 20230512
  Transmission Date: 20230722
  Serious: Yes (Death, Hospitalization, Other)
  Sender: FDA-Public Use
  Company Number: IT-BRISTOL-MYERS SQUIBB COMPANY-2023-017230

PATIENT
  Age: 64 Year
  Sex: Male

DRUGS (5)
  1. NIVOLUMAB [Suspect]
     Active Substance: NIVOLUMAB
     Indication: Gastrointestinal carcinoma
     Dates: start: 20220708, end: 20220819
  2. ALFUZOSIN [Concomitant]
     Active Substance: ALFUZOSIN
     Indication: Benign prostatic hyperplasia
     Dosage: 2.5MGX4/DIE
     Route: 048
     Dates: start: 20220701
  3. OMEPRAZOLE [Concomitant]
     Active Substance: OMEPRAZOLE
     Indication: Product used for unknown indication
     Route: 042
     Dates: start: 20220104
  4. SOTALOL HYDROCHLORIDE [Concomitant]
     Active Substance: SOTALOL HYDROCHLORIDE
     Indication: Heart rate abnormal
     Route: 048
     Dates: start: 20220908
  5. ENOXAPARIN [Concomitant]
     Active Substance: ENOXAPARIN
     Indication: Thrombosis prophylaxis
     Route: 058
     Dates: start: 20220704

REACTIONS (5)
  - Muscular weakness [Fatal]
  - Myositis [Fatal]
  - Hepatitis [Recovered/Resolved]
  - Atrioventricular block [Recovered/Resolved]
  - Myocarditis [Unknown]

NARRATIVE: CASE EVENT DATE: 20220902
